FAERS Safety Report 17557408 (Version 1)
Quarter: 2020Q1

REPORT INFORMATION
  Report Type: Report from Study
  Country: US (occurrence: US)
  Receive Date: 20200318
  Receipt Date: 20200318
  Transmission Date: 20200409
  Serious: Yes (Other)
  Sender: FDA-Public Use
  Company Number: US-SHIRE-US202008587

PATIENT
  Age: 56 Year
  Sex: Female
  Weight: 58.05 kg

DRUGS (1)
  1. HUMAN IMMUNOGLOBULIN; HYALURONIDASE [Suspect]
     Active Substance: HUMAN IMMUNOGLOBULIN G\HYALURONIDASE RECOMBINANT HUMAN
     Indication: IMMUNODEFICIENCY
     Dosage: 1 GRAM, 1X/WEEK
     Route: 065
     Dates: start: 20200225, end: 20200225

REACTIONS (6)
  - Brain oedema [Unknown]
  - Infusion site erythema [Unknown]
  - Infusion site induration [Unknown]
  - Weight increased [Unknown]
  - Infusion site swelling [Unknown]
  - Chills [Unknown]

NARRATIVE: CASE EVENT DATE: 20200227
